FAERS Safety Report 6601197-5 (Version None)
Quarter: 2010Q1

REPORT INFORMATION
  Report Type: 
  Country: None (occurrence: None)
  Receive Date: 20100224
  Receipt Date: 20100224
  Transmission Date: 20100710
  Serious: Yes (Other)
  Sender: FDA-Public Use
  Company Number: None

PATIENT
  Sex: Female
  Weight: 93.441 kg

DRUGS (1)
  1. FENTANYL [Suspect]
     Indication: SPINAL FRACTURE
     Dosage: 1 FOR 72 HR TOPICAL
     Route: 061

REACTIONS (1)
  - HEART RATE INCREASED [None]
